FAERS Safety Report 8841875 (Version 2)
Quarter: 2012Q4

REPORT INFORMATION
  Report Type: 
  Country: US (occurrence: None)
  Receive Date: 20121016
  Receipt Date: 20121017
  Transmission Date: 20130627
  Serious: Yes (Life-Threatening)
  Sender: FDA-Public Use
  Company Number: None

PATIENT
  Age: 47 Year
  Sex: Female
  Weight: 96.16 kg

DRUGS (6)
  1. METHYLPREDNISOLONE ACETATE [Suspect]
     Indication: BACK PAIN
     Route: 008
     Dates: start: 20120814, end: 20120814
  2. METHYLPREDNISOLONE ACETATE [Suspect]
     Indication: HERNIATED DISC
     Route: 008
     Dates: start: 20120814, end: 20120814
  3. METHYLPREDNISOLONE ACETATE [Suspect]
     Indication: LEG PAIN
     Route: 008
     Dates: start: 20120814, end: 20120814
  4. METHYLPREDNISOLONE ACETATE [Suspect]
     Indication: BACK PAIN
     Dates: start: 20120911, end: 20120911
  5. METHYLPREDNISOLONE ACETATE [Suspect]
     Indication: HERNIATED DISC
     Dates: start: 20120911, end: 20120911
  6. METHYLPREDNISOLONE ACETATE [Suspect]
     Indication: LEG PAIN
     Dates: start: 20120911, end: 20120911

REACTIONS (8)
  - Pain [None]
  - No therapeutic response [None]
  - Impaired driving ability [None]
  - Memory impairment [None]
  - Balance disorder [None]
  - Headache [None]
  - Dysgraphia [None]
  - Incoherent [None]
